FAERS Safety Report 10128458 (Version 1)
Quarter: 2014Q2

REPORT INFORMATION
  Report Type: Spontaneous
  Country: US (occurrence: None)
  Receive Date: 20140425
  Receipt Date: 20140425
  Transmission Date: 20141212
  Serious: No
  Sender: FDA-Public Use
  Company Number: None

PATIENT
  Age: 30 Year
  Sex: Female

DRUGS (1)
  1. TECFIDERA [Suspect]
     Indication: DRUG THERAPY
     Route: 048
     Dates: start: 20140424

REACTIONS (3)
  - Flushing [None]
  - Burning sensation [None]
  - Flushing [None]
